FAERS Safety Report 19503921 (Version 1)
Quarter: 2021Q3

REPORT INFORMATION
  Report Type: Spontaneous
  Country: ES (occurrence: ES)
  Receive Date: 20210707
  Receipt Date: 20210707
  Transmission Date: 20211014
  Serious: Yes (Hospitalization)
  Sender: FDA-Public Use
  Company Number: ES-IPSEN BIOPHARMACEUTICALS, INC.-2021-16194

PATIENT
  Age: 63 Year
  Sex: Female

DRUGS (5)
  1. FOSFOMYCIN [Concomitant]
     Active Substance: FOSFOMYCIN
  2. SOMATULINE AUTOGEL [Suspect]
     Active Substance: LANREOTIDE ACETATE
     Route: 058
  3. EVEROLIMUS. [Suspect]
     Active Substance: EVEROLIMUS
     Indication: NEUROENDOCRINE TUMOUR
     Route: 065
     Dates: start: 201909
  4. ITRIO90 [Suspect]
     Active Substance: YTTRIUM Y-90
     Indication: NEUROENDOCRINE TUMOUR
     Dosage: UNKNOWN
     Route: 065
     Dates: start: 202008
  5. SOMATULINE AUTOGEL [Suspect]
     Active Substance: LANREOTIDE ACETATE
     Indication: NEUROENDOCRINE TUMOUR
     Route: 065
     Dates: start: 201909

REACTIONS (9)
  - Diarrhoea [Unknown]
  - Stomatitis [Unknown]
  - Vulvovaginal inflammation [Unknown]
  - Arthralgia [Unknown]
  - Off label use [Unknown]
  - Abdominal pain [Unknown]
  - Keratitis [Unknown]
  - Cough [Unknown]
  - Toxicity to various agents [Unknown]
